FAERS Safety Report 9515732 (Version 2)
Quarter: 2013Q4

REPORT INFORMATION
  Report Type: Spontaneous
  Country: GB (occurrence: GB)
  Receive Date: 20130911
  Receipt Date: 20131022
  Transmission Date: 20140711
  Serious: Yes (Other)
  Sender: FDA-Public Use
  Company Number: GB-PFIZER INC-2013258131

PATIENT
  Sex: Female

DRUGS (14)
  1. LYRICA [Suspect]
     Dosage: UNK
     Dates: start: 201304, end: 201305
  2. LYRICA [Suspect]
     Dosage: 75 MG, 2X/DAY
     Dates: start: 20130517
  3. LYRICA [Suspect]
     Dosage: 75 MG, 3X/DAY
     Dates: end: 20130823
  4. FENTANYL [Concomitant]
  5. SUNITINIB [Concomitant]
  6. METOCLOPRAMIDE [Concomitant]
  7. DEXAMETHASONE [Concomitant]
  8. DICLOFENAC [Concomitant]
  9. IRON SULFATE [Concomitant]
  10. OXYNORM [Concomitant]
  11. PARACETAMOL [Concomitant]
  12. MAGNESIUM HYDROXIDE [Concomitant]
  13. LANSOPRAZOLE [Concomitant]
  14. SODIUM PICOSULFATE [Concomitant]

REACTIONS (5)
  - Suicidal ideation [Unknown]
  - Anxiety [Unknown]
  - Abdominal discomfort [Unknown]
  - Impaired work ability [Unknown]
  - Feeling abnormal [Unknown]
